FAERS Safety Report 22320392 (Version 1)
Quarter: 2023Q2

REPORT INFORMATION
  Report Type: Spontaneous
  Country: FR (occurrence: FR)
  Receive Date: 20230515
  Receipt Date: 20230515
  Transmission Date: 20230722
  Serious: Yes (Life-Threatening)
  Sender: FDA-Public Use
  Company Number: None

PATIENT
  Age: 21 Year
  Sex: Female
  Weight: 57 kg

DRUGS (6)
  1. VERAPAMIL HYDROCHLORIDE [Suspect]
     Active Substance: VERAPAMIL HYDROCHLORIDE
     Indication: Cluster headache
     Dosage: 80 MILLIGRAM, Q8H
     Route: 048
     Dates: start: 20230307, end: 20230327
  2. DULOXETINE [Suspect]
     Active Substance: DULOXETINE
     Indication: Cluster headache
     Dosage: 30 MILLIGRAM, QD
     Route: 048
     Dates: start: 20230215, end: 20230320
  3. DULOXETINE [Suspect]
     Active Substance: DULOXETINE
     Dosage: 60 MILLIGRAM, QD
     Route: 048
     Dates: start: 20230320, end: 20230327
  4. SUMATRIPTAN SUCCINATE [Suspect]
     Active Substance: SUMATRIPTAN SUCCINATE
     Indication: Cluster headache
     Dosage: 2 DOSAGE FORM, QD
     Route: 058
     Dates: start: 20230125, end: 20230320
  5. SUMATRIPTAN SUCCINATE [Suspect]
     Active Substance: SUMATRIPTAN SUCCINATE
     Dosage: 5 DOSAGE FORM, QD
     Route: 058
     Dates: start: 20230320
  6. TERALITHE [Suspect]
     Active Substance: LITHIUM CARBONATE
     Indication: Cluster headache
     Dosage: 250 MILLIGRAM, QD
     Route: 048
     Dates: start: 20230320, end: 20230327

REACTIONS (5)
  - Lactic acidosis [Recovered/Resolved]
  - Cardiogenic shock [Recovered/Resolved]
  - Hyperkalaemia [Recovered/Resolved]
  - Bradycardia [Recovered/Resolved]
  - Acute kidney injury [Recovered/Resolved]

NARRATIVE: CASE EVENT DATE: 20230327
